FAERS Safety Report 7802770-9 (Version None)
Quarter: 2011Q4

REPORT INFORMATION
  Report Type: 
  Country: None (occurrence: None)
  Receive Date: 20111007
  Receipt Date: 20110930
  Transmission Date: 20120403
  Serious: Yes (Hospitalization, Other)
  Sender: FDA-Public Use
  Company Number: US-TEVA-300486USA

PATIENT
  Sex: Female

DRUGS (8)
  1. LOPERAMIDE HCL [Concomitant]
  2. LEUCOVORIN CALCIUM [Suspect]
     Indication: NEOPLASM MALIGNANT
     Route: 042
     Dates: start: 20110805
  3. IRINOTECAN HCL [Suspect]
     Indication: NEOPLASM MALIGNANT
     Route: 042
     Dates: start: 20110805
  4. ONDANSETRON HCL [Concomitant]
  5. FLUOROURACIL [Suspect]
     Indication: NEOPLASM MALIGNANT
     Route: 042
     Dates: start: 20110805
  6. ASPIRIN [Suspect]
     Indication: NEOPLASM MALIGNANT
     Route: 048
  7. TYLOX [Concomitant]
  8. INVESTIGATIONAL DRUG (BRIVANIB ALANINATE) [Suspect]
     Indication: NEOPLASM MALIGNANT
     Dosage: 800 MILLIGRAM;
     Route: 048
     Dates: start: 20110805

REACTIONS (1)
  - CEREBRAL HAEMORRHAGE [None]
